FAERS Safety Report 6348666-3 (Version None)
Quarter: 2009Q3

REPORT INFORMATION
  Report Type: 
  Country: None (occurrence: None)
  Receive Date: 20090911
  Receipt Date: 20090901
  Transmission Date: 20100115
  Serious: Yes (Life-Threatening, Hospitalization)
  Sender: FDA-Public Use
  Company Number: FR-WYE-H10836409

PATIENT
  Sex: Female

DRUGS (8)
  1. INIPOMP [Suspect]
     Dosage: UNKNOWN
     Route: 048
     Dates: end: 20090815
  2. BIRODOGYL [Suspect]
     Indication: TOOTH DISORDER
     Dosage: UNKNOWN
     Dates: start: 20090803, end: 20090806
  3. KARDEGIC [Concomitant]
     Dosage: UNKNOWN
     Dates: start: 20090815
  4. APROVEL [Suspect]
     Dosage: UNKNOWN
     Dates: end: 20090815
  5. INSULIN [Concomitant]
     Dosage: UNKNOWN
  6. LEVOTHYROXINE SODIUM [Concomitant]
     Dosage: UNKNOWN
     Dates: start: 20090815
  7. EFFERALGAN [Suspect]
     Indication: TOOTH DISORDER
     Dosage: UNKNOWN
     Dates: start: 20090801, end: 20090815
  8. TAHOR [Suspect]
     Dosage: UNKNOWN
     Route: 048
     Dates: end: 20090815

REACTIONS (3)
  - ASTHENIA [None]
  - CYTOLYTIC HEPATITIS [None]
  - PROTHROMBIN TIME SHORTENED [None]
